FAERS Safety Report 5608732-4 (Version None)
Quarter: 2008Q1

REPORT INFORMATION
  Report Type: 
  Country: None (occurrence: None)
  Receive Date: 20080128
  Receipt Date: 20080128
  Transmission Date: 20080703
  Serious: Yes (Other)
  Sender: FDA-Public Use
  Company Number: None

PATIENT
  Age: 65 Year
  Sex: Male
  Weight: 88.4514 kg

DRUGS (2)
  1. BUPROPION HCL [Suspect]
     Indication: ANXIETY
     Dosage: 300 MG ONCE/DAY PO INTERMITTENT
     Route: 048
     Dates: start: 20071212, end: 20080103
  2. BUPROPION HCL [Suspect]
     Indication: DEPRESSION
     Dosage: 300 MG ONCE/DAY PO INTERMITTENT
     Route: 048
     Dates: start: 20071212, end: 20080103

REACTIONS (1)
  - ABDOMINAL PAIN UPPER [None]
